FAERS Safety Report 17205931 (Version 2)
Quarter: 2019Q4

REPORT INFORMATION
  Report Type: Report from Study
  Country: US (occurrence: US)
  Receive Date: 20191227
  Receipt Date: 20191230
  Transmission Date: 20200122
  Serious: Yes (Death)
  Sender: FDA-Public Use
  Company Number: US-ROCHE-2502241

PATIENT
  Sex: Female

DRUGS (2)
  1. AVASTIN [Suspect]
     Active Substance: BEVACIZUMAB
     Indication: COLON CANCER
     Dosage: INFUSE 561 MG INTRAVENOUSLY EVERY 3 WEEK (S)
     Route: 042
  2. AVASTIN [Suspect]
     Active Substance: BEVACIZUMAB
     Dosage: INFUSE 561 MG INTRAVENOUSLY EVERY 3 WEEK(S)?VIAL
     Route: 042

REACTIONS (1)
  - Death [Fatal]
